FAERS Safety Report 8737409 (Version 2)
Quarter: 2012Q4

REPORT INFORMATION
  Report Type: 
  Country: US (occurrence: US)
  Receive Date: 20120822
  Receipt Date: 20120831
  Transmission Date: 20130627
  Serious: No
  Sender: FDA-Public Use
  Company Number: US-PFIZER INC-2012201199

PATIENT
  Sex: Female

DRUGS (2)
  1. PREMARIN [Suspect]
     Dosage: UNK
  2. PROPYLENE GLYCOL [Suspect]
     Dosage: UNK

REACTIONS (2)
  - Coital bleeding [Unknown]
  - Drug ineffective [Unknown]
